FAERS Safety Report 9115354 (Version 1)
Quarter: 2013Q1

REPORT INFORMATION
  Report Type: Spontaneous
  Country: US (occurrence: None)
  Receive Date: 20130128
  Receipt Date: 20130128
  Transmission Date: 20140127
  Serious: Yes (Hospitalization)
  Sender: FDA-Public Use
  Company Number: DKLU1087664

PATIENT
  Age: 15 Month
  Sex: Female
  Weight: 9.98 kg

DRUGS (5)
  1. SABRIL (FOR ORAL SOLUTION) (SABRIL) (VIGABATRIN) (500 MG, POWDER FOR ORAL SOLUTION) [Suspect]
     Indication: INFANTILE SPASMS
     Dates: start: 20111227
  2. ONFI [Concomitant]
  3. ZONEGRAN (ZONISAMIDE) [Concomitant]
  4. KLONOPIN (CLONAZEPAM) [Concomitant]
  5. KEPPRA (LEVETIRACETAM) [Concomitant]

REACTIONS (3)
  - Ileus [None]
  - Influenza [None]
  - Chest X-ray abnormal [None]
